FAERS Safety Report 20415997 (Version 1)
Quarter: 2022Q1

REPORT INFORMATION
  Report Type: Spontaneous
  Country: US (occurrence: US)
  Receive Date: 20220202
  Receipt Date: 20220202
  Transmission Date: 20220423
  Serious: Yes (Hospitalization, Other)
  Sender: FDA-Public Use
  Company Number: US-MLMSERVICE-20220117-3320936-1

PATIENT
  Age: 43 Year
  Sex: Female

DRUGS (2)
  1. ITRACONAZOLE [Suspect]
     Active Substance: ITRACONAZOLE
     Indication: Chronic pulmonary histoplasmosis
     Route: 048
  2. VORICONAZOLE [Suspect]
     Active Substance: VORICONAZOLE
     Indication: Histoplasmosis
     Dosage: TEST DOSE
     Route: 048

REACTIONS (3)
  - Angioedema [Recovered/Resolved]
  - Cross sensitivity reaction [Recovered/Resolved]
  - Urticaria [Recovered/Resolved]
